FAERS Safety Report 5749411-2 (Version None)
Quarter: 2008Q2

REPORT INFORMATION
  Report Type: 
  Country: None (occurrence: None)
  Receive Date: 20080521
  Receipt Date: 20080521
  Transmission Date: 20081010
  Serious: Yes (Life-Threatening)
  Sender: FDA-Public Use
  Company Number: None

PATIENT
  Sex: Female
  Weight: 58.514 kg

DRUGS (2)
  1. RITUXAN [Suspect]
     Indication: RHEUMATOID ARTHRITIS
     Dosage: 1000 MG Q 4MO LAST INFUSION 4/14/08
     Dates: end: 20080414
  2. IMURAN [Suspect]
     Indication: RHEUMATOID ARTHRITIS
     Dosage: 150 MG QD

REACTIONS (1)
  - MALIGNANT MELANOMA [None]
